FAERS Safety Report 7347515-4 (Version None)
Quarter: 2011Q1

REPORT INFORMATION
  Report Type: 
  Country: None (occurrence: None)
  Receive Date: 20110311
  Receipt Date: 20110207
  Transmission Date: 20110831
  Serious: No
  Sender: FDA-Public Use
  Company Number: US-BAYER-201029487NA

PATIENT
  Sex: Female

DRUGS (5)
  1. YASMIN [Suspect]
     Dosage: UNK
     Dates: start: 20081001, end: 20090401
  2. METFORMIN HCL [Concomitant]
     Dosage: 500 MG, UNK
  3. YAZ [Suspect]
     Indication: ACNE
  4. METRONIDAZOLE [Concomitant]
     Dosage: 500 MG, UNK
  5. YASMIN [Suspect]
     Indication: ACNE
     Dosage: UNK
     Dates: start: 20080101, end: 20080301

REACTIONS (1)
  - INJURY [None]
